FAERS Safety Report 10243041 (Version 4)
Quarter: 2014Q3

REPORT INFORMATION
  Report Type: Spontaneous
  Country: US (occurrence: None)
  Receive Date: 20140613
  Receipt Date: 20140808
  Transmission Date: 20150326
  Serious: Yes (Hospitalization)
  Sender: FDA-Public Use
  Company Number: UNT-2014-001667

PATIENT
  Age: 62 Year
  Sex: Female
  Weight: 95.3 kg

DRUGS (5)
  1. METOLAZONE. [Concomitant]
     Active Substance: METOLAZONE
  2. LETAIRIS [Concomitant]
     Active Substance: AMBRISENTAN
  3. LASIX [Concomitant]
     Active Substance: FUROSEMIDE
  4. TYVASO [Suspect]
     Active Substance: TREPROSTINIL
     Indication: COR PULMONALE CHRONIC
     Route: 055
     Dates: start: 20091203
  5. REVATIO [Concomitant]
     Active Substance: SILDENAFIL CITRATE

REACTIONS (4)
  - Hypokalaemia [None]
  - Blood potassium decreased [None]
  - Hyponatraemia [None]
  - Cor pulmonale [None]

NARRATIVE: CASE EVENT DATE: 20140515
